FAERS Safety Report 5956722-4 (Version None)
Quarter: 2008Q4

REPORT INFORMATION
  Report Type: 
  Country: None (occurrence: None)
  Receive Date: 20081118
  Receipt Date: 20081104
  Transmission Date: 20090506
  Serious: Yes (Other)
  Sender: FDA-Public Use
  Company Number: US-ELI_LILLY_AND_COMPANY-US200602004517

PATIENT
  Sex: Female

DRUGS (11)
  1. FORTEO [Suspect]
     Indication: OSTEOPOROSIS
     Dosage: 20 UG, DAILY (1/D)
     Dates: start: 20050101
  2. FORTEO [Suspect]
     Dosage: 20 UG, DAILY (1/D)
  3. NEXIUM                                  /UNK/ [Concomitant]
  4. PRENATAL VITAMINS                  /01549301/ [Concomitant]
  5. TOPROL-XL [Concomitant]
  6. AVAPRO [Concomitant]
  7. LEXAPRO [Concomitant]
  8. KLONOPIN [Concomitant]
  9. POTASSIUM CHLORIDE [Concomitant]
  10. LEVOTHYROXINE SODIUM [Concomitant]
  11. AVANDIA [Concomitant]

REACTIONS (3)
  - DIARRHOEA [None]
  - HOT FLUSH [None]
  - RENAL DISORDER [None]
